FAERS Safety Report 20503656 (Version 1)
Quarter: 2022Q1

REPORT INFORMATION
  Report Type: Spontaneous
  Country: US (occurrence: None)
  Receive Date: 20220221
  Receipt Date: 20220221
  Transmission Date: 20220424
  Serious: Yes (Hospitalization)
  Sender: FDA-Public Use
  Company Number: None

PATIENT
  Age: 51 Year
  Sex: Female
  Weight: 79.6 kg

DRUGS (1)
  1. CASIRIVIMAB\IMDEVIMAB [Suspect]
     Active Substance: CASIRIVIMAB\IMDEVIMAB
     Indication: COVID-19

REACTIONS (4)
  - Infusion related reaction [None]
  - Oxygen saturation decreased [None]
  - Heart rate increased [None]
  - COVID-19 pneumonia [None]

NARRATIVE: CASE EVENT DATE: 20220113
